FAERS Safety Report 8495029-0 (Version None)
Quarter: 2012Q3

REPORT INFORMATION
  Report Type: 
  Country: None (occurrence: None)
  Receive Date: 20120709
  Receipt Date: 20120702
  Transmission Date: 20120928
  Serious: Yes (Other)
  Sender: FDA-Public Use
  Company Number: PHHY2012MX057952

PATIENT
  Age: 65 Year
  Sex: Female

DRUGS (1)
  1. DIOVAN HCT [Suspect]
     Indication: HYPERTENSION
     Dosage: 1 DF (160 MG VALS/ 12.5 MG HCT), DAILY
     Dates: start: 20100319

REACTIONS (4)
  - IRRITABLE BOWEL SYNDROME [None]
  - EATING DISORDER [None]
  - WEIGHT DECREASED [None]
  - DIVERTICULITIS [None]
